FAERS Safety Report 19464561 (Version 2)
Quarter: 2021Q2

REPORT INFORMATION
  Report Type: Spontaneous
  Country: US (occurrence: US)
  Receive Date: 20210626
  Receipt Date: 20210626
  Transmission Date: 20210717
  Serious: No
  Sender: FDA-Public Use
  Company Number: US-ASTRAZENECA-2021A526182

PATIENT
  Sex: Male

DRUGS (1)
  1. BYDUREON BCISE [Suspect]
     Active Substance: EXENATIDE
     Indication: TYPE 2 DIABETES MELLITUS
     Route: 058

REACTIONS (8)
  - Pain [Unknown]
  - Feeling abnormal [Unknown]
  - Erythema [Unknown]
  - Acne [Unknown]
  - Scab [Unknown]
  - Injection site reaction [Unknown]
  - Nodule [Unknown]
  - Urticaria [Unknown]
